FAERS Safety Report 4335873-4 (Version None)
Quarter: 2004Q2

REPORT INFORMATION
  Report Type: 
  Country: None (occurrence: None)
  Receive Date: 20040406
  Receipt Date: 20040324
  Transmission Date: 20050107
  Serious: Yes (Other)
  Sender: FDA-Public Use
  Company Number: 2004020383

PATIENT
  Age: 68 Year
  Sex: Male
  Weight: 79.3795 kg

DRUGS (8)
  1. LIPITOR [Suspect]
     Indication: BLOOD CHOLESTEROL INCREASED
     Dosage: 80 MG (DAILY), ORAL
     Route: 048
     Dates: start: 20031201
  2. WARFARIN SODIUM [Concomitant]
  3. ALLOPURINOL [Concomitant]
  4. LISINOPRIL [Concomitant]
  5. CARVEDILOL [Concomitant]
  6. PAROXETINE HCL [Concomitant]
  7. OMEPRAZOLE [Concomitant]
  8. SPIRONOLACTONE [Concomitant]

REACTIONS (3)
  - CHEST PAIN [None]
  - FATIGUE [None]
  - MUSCLE DISORDER [None]
